FAERS Safety Report 21389043 (Version 1)
Quarter: 2022Q3

REPORT INFORMATION
  Report Type: Report from Study
  Country: US (occurrence: US)
  Receive Date: 20220929
  Receipt Date: 20220929
  Transmission Date: 20221027
  Serious: Yes (Hospitalization, Other)
  Sender: FDA-Public Use
  Company Number: US-GILEAD-2022-0599202

PATIENT
  Age: 10 Year
  Sex: Male

DRUGS (26)
  1. AZTREONAM LYSINE [Suspect]
     Active Substance: AZTREONAM LYSINE
     Indication: Pseudomonas infection
     Dosage: 75 MG, TID
     Route: 055
     Dates: start: 201909
  2. SINGULAIR [Concomitant]
     Active Substance: MONTELUKAST SODIUM
  3. SENNA [SENNA ALEXANDRINA LEAF] [Concomitant]
  4. ACETYLCYSTEINE [Concomitant]
     Active Substance: ACETYLCYSTEINE
  5. COLISTIMETHATE SODIUM [Concomitant]
     Active Substance: COLISTIMETHATE SODIUM
  6. GABAPENTIN [Concomitant]
     Active Substance: GABAPENTIN
  7. FAMOTIDINE [Concomitant]
     Active Substance: FAMOTIDINE
  8. KLONOPIN [Concomitant]
     Active Substance: CLONAZEPAM
  9. CENTRUM JR [MINERALS NOS;VITAMINS NOS] [Concomitant]
  10. TRILEPTAL [Concomitant]
     Active Substance: OXCARBAZEPINE
  11. BUDESONIDE [Concomitant]
     Active Substance: BUDESONIDE
  12. LACTULOSE [Concomitant]
     Active Substance: LACTULOSE
  13. PYRIDOXINE [Concomitant]
     Active Substance: PYRIDOXINE
  14. IPRATROPIUM BROMIDE [Concomitant]
     Active Substance: IPRATROPIUM BROMIDE
  15. MELATONIN [Concomitant]
     Active Substance: MELATONIN
  16. KEPPRA [Concomitant]
     Active Substance: LEVETIRACETAM
  17. ZYRTEC [Concomitant]
     Active Substance: CETIRIZINE HYDROCHLORIDE
  18. ALBUTEROL SULFATE [Concomitant]
     Active Substance: ALBUTEROL SULFATE
  19. METOCLOPRAMIDE HYDROCHLORIDE [Concomitant]
     Active Substance: METOCLOPRAMIDE HYDROCHLORIDE
  20. SODIUM CHLORIDE [Concomitant]
     Active Substance: SODIUM CHLORIDE
  21. LEVOCARNITINE [Concomitant]
     Active Substance: LEVOCARNITINE
  22. ONFI [Concomitant]
     Active Substance: CLOBAZAM
  23. BACLOFEN [Concomitant]
     Active Substance: BACLOFEN
  24. GLYCOPYRROLATE [Concomitant]
     Active Substance: GLYCOPYRROLATE
  25. LACTOBACILLUS [LACTOBACILLUS ACIDOPHILUS] [Concomitant]
  26. COLISTIN [Concomitant]
     Active Substance: COLISTIN

REACTIONS (3)
  - Surgery [Unknown]
  - Infection [Unknown]
  - Off label use [Not Recovered/Not Resolved]

NARRATIVE: CASE EVENT DATE: 20220905
